FAERS Safety Report 15624713 (Version 1)
Quarter: 2018Q4

REPORT INFORMATION
  Report Type: Spontaneous
  Country: PL (occurrence: PL)
  Receive Date: 20181116
  Receipt Date: 20181116
  Transmission Date: 20190205
  Serious: Yes (Hospitalization, Other)
  Sender: FDA-Public Use
  Company Number: PL-ALKEM LABORATORIES LIMITED-PL-ALKEM-2018-09117

PATIENT
  Age: 23 Year
  Sex: Female

DRUGS (4)
  1. CYCLOSPORINE. [Suspect]
     Active Substance: CYCLOSPORINE
     Indication: IMMUNOSUPPRESSANT DRUG THERAPY
     Dosage: INITIALLY 5 MG/KG/DAY,THENCORRECTEDACCORDING TO DRUG LEVELS IN THE SERUM
     Route: 065
     Dates: start: 201312
  2. TRIMETHOPRIM?SULFAMETHOXAZOLE [Suspect]
     Active Substance: SULFAMETHOXAZOLE\TRIMETHOPRIM
     Indication: PRODUCT USED FOR UNKNOWN INDICATION
     Dosage: 960 BID, 4 DAYS/WEEK,
     Route: 065
     Dates: start: 201312
  3. TRIMETHOPRIM?SULFAMETHOXAZOLE [Suspect]
     Active Substance: SULFAMETHOXAZOLE\TRIMETHOPRIM
     Dosage: 480 MG, BID, 4 DAYS/WEEK AFTERWARDS
     Route: 065
  4. MYCOPHENOLATE MOFETIL. [Suspect]
     Active Substance: MYCOPHENOLATE MOFETIL
     Indication: IMMUNOSUPPRESSANT DRUG THERAPY
     Dosage: 500 MG, TID
     Route: 065
     Dates: start: 201312

REACTIONS (6)
  - Viral infection [Unknown]
  - Respiratory tract infection [Recovering/Resolving]
  - Microsporidia infection [Recovering/Resolving]
  - Protein-losing gastroenteropathy [Unknown]
  - Toxicity to various agents [Unknown]
  - Malabsorption [Unknown]

NARRATIVE: CASE EVENT DATE: 201302
